FAERS Safety Report 5333027-6 (Version None)
Quarter: 2007Q1

REPORT INFORMATION
  Report Type: 
  Country: None (occurrence: None)
  Receive Date: 20070306
  Receipt Date: 20061025
  Transmission Date: 20070707
  Serious: Yes (Hospitalization)
  Sender: FDA-Public Use
  Company Number: A03200606485

PATIENT
  Age: 56 Year
  Sex: Male
  Weight: 96.6 kg

DRUGS (11)
  1. PLAVIX [Suspect]
     Indication: STENT PLACEMENT
     Dosage: 75 MG QD - ORAL
     Route: 048
     Dates: start: 20040101, end: 20061024
  2. PLAVIX [Suspect]
     Indication: THROMBOSIS PROPHYLAXIS
     Dosage: 75 MG QD - ORAL
     Route: 048
     Dates: start: 20040101, end: 20061024
  3. LISINOPRIL [Concomitant]
  4. OLANZAPINE [Concomitant]
  5. DIAZEPAM [Concomitant]
  6. ATENOLOL [Concomitant]
  7. CITALOPRAM HYDROBROMIDE [Concomitant]
  8. TRAZODONE HCL [Concomitant]
  9. FELODIPINE [Concomitant]
  10. OMEPRAZOLE [Concomitant]
  11. OXYCODONE HCL [Concomitant]

REACTIONS (5)
  - BLOOD PRESSURE SYSTOLIC INCREASED [None]
  - CONTUSION [None]
  - DEPRESSION [None]
  - MEDICAL DEVICE COMPLICATION [None]
  - SKIN HAEMORRHAGE [None]
